FAERS Safety Report 9838176 (Version 3)
Quarter: 2015Q3

REPORT INFORMATION
  Report Type: Report from Study
  Country: US (occurrence: US)
  Receive Date: 20140123
  Receipt Date: 20150806
  Transmission Date: 20151125
  Serious: Yes (Life-Threatening, Hospitalization)
  Sender: FDA-Public Use
  Company Number: US-AMGEN-USACT2014003475

PATIENT
  Age: 47 Year
  Sex: Female
  Weight: 123.6 kg

DRUGS (3)
  1. PANITUMUMAB [Suspect]
     Active Substance: PANITUMUMAB
     Indication: LUNG ADENOCARCINOMA
     Dosage: 1710 MG, UNK
     Route: 065
     Dates: end: 20130828
  2. PACLITAXEL. [Concomitant]
     Active Substance: PACLITAXEL
     Dosage: 50 MG/M2, Q6WK
     Dates: start: 20130624, end: 20131212
  3. CARBOPLATIN. [Concomitant]
     Active Substance: CARBOPLATIN
     Indication: LUNG ADENOCARCINOMA
     Dosage: UNK UNK, Q3WK
     Dates: start: 20130624, end: 20140114

REACTIONS (3)
  - Respiratory failure [Recovering/Resolving]
  - Anaphylactic reaction [Recovered/Resolved]
  - Cardiac arrest [Recovered/Resolved]

NARRATIVE: CASE EVENT DATE: 20140114
